FAERS Safety Report 6524545-3 (Version None)
Quarter: 2010Q1

REPORT INFORMATION
  Report Type: 
  Country: None (occurrence: None)
  Receive Date: 20100104
  Receipt Date: 20091222
  Transmission Date: 20100710
  Serious: Yes (Hospitalization)
  Sender: FDA-Public Use
  Company Number: NL-ROCHE-652601

PATIENT

DRUGS (13)
  1. CAPECITABINE [Suspect]
     Indication: GASTRIC CANCER
     Dosage: DOSE:1000 MG/M2 BID FROM DAY 1-14 EVERY 3 WEEKS, STRENGTH: 500 OR 150 MG TABLETS (AS PER PROTOCOL)
     Route: 048
     Dates: start: 20090722, end: 20090824
  2. CAPECITABINE [Suspect]
     Dosage: DATE OF LAST DOSE BEFORE EVENT WAS REPORTED AS 19 DEC 2009.
     Route: 048
     Dates: end: 20091220
  3. EPIRUBICIN [Suspect]
     Indication: GASTRIC CANCER
     Dosage: PROTOCOL: DAY 1 AS AN INTRAVENOUS PUSH EVERY 3 WEEKS IMMEDIATE PRIOR TO THE CISPLATIN.
     Route: 042
     Dates: start: 20090722, end: 20090824
  4. EPIRUBICIN [Suspect]
     Dosage: DATE OF LAST DOSE BEFORE EVENT WAS REPORTED AS 19 DEC 2009.
     Route: 042
     Dates: end: 20091220
  5. CISPLATIN [Suspect]
     Indication: GASTRIC CANCER
     Dosage: PROTOCOL: DAY 1 INTRAVENOUSLY EVERY 3 WEEKS WITH HYDRATION
     Route: 042
     Dates: start: 20090722, end: 20090824
  6. CISPLATIN [Suspect]
     Dosage: DATE OF LAST DOSE BEFORE EVENT WAS REPORTED AS 19 DEC 2009.
     Route: 042
     Dates: end: 20091220
  7. METFORMIN [Concomitant]
     Dosage: 500MG, 2 X DD
     Route: 048
  8. LEVEMIR [Concomitant]
     Dosage: DRUG NAME REPORTED AS LEVEMR INSULIN. DOSAGE NOT LEGIBLE.
  9. ASCAL [Concomitant]
  10. PERINDOPRIL ERBUMINE [Concomitant]
  11. TEMAZEPAM [Concomitant]
     Dosage: DOSAGE: 1X10 MG.
  12. HYDROCHLOROTHIAZIDE [Concomitant]
     Dosage: DOSAGE NOT LEGIBLE.
  13. PARACETAMOL [Concomitant]
     Dosage: DRUG: PCM. DOSAGE: 3X20 SUPP.ZN
     Route: 054

REACTIONS (9)
  - ABNORMAL FAECES [None]
  - BLOOD ALBUMIN DECREASED [None]
  - DIARRHOEA [None]
  - HYPOKALAEMIA [None]
  - HYPONATRAEMIA [None]
  - HYPOPHAGIA [None]
  - NAUSEA [None]
  - THROMBOCYTOPENIA [None]
  - VOMITING [None]
